FAERS Safety Report 20822114 (Version 1)
Quarter: 2022Q2

REPORT INFORMATION
  Report Type: Spontaneous
  Country: US (occurrence: US)
  Receive Date: 20220512
  Receipt Date: 20220512
  Transmission Date: 20220720
  Serious: No
  Sender: FDA-Public Use
  Company Number: US-PFIZER INC-202200500868

PATIENT
  Age: 55 Year
  Sex: Female

DRUGS (4)
  1. XELJANZ XR [Suspect]
     Active Substance: TOFACITINIB CITRATE
     Dosage: 11 MG, 1X/DAY
     Route: 048
     Dates: start: 202010
  2. IBUPROFEN [Concomitant]
     Active Substance: IBUPROFEN
     Dosage: 600 MG
  3. FOLIC ACID [Concomitant]
     Active Substance: FOLIC ACID
     Dosage: 0.4 MG
  4. METHOTREXATE [Concomitant]
     Active Substance: METHOTREXATE
     Dosage: 2.5 MG

REACTIONS (3)
  - Increased tendency to bruise [Not Recovered/Not Resolved]
  - Intentional product use issue [Unknown]
  - Arthralgia [Unknown]
